FAERS Safety Report 7450000-2 (Version None)
Quarter: 2011Q2

REPORT INFORMATION
  Report Type: 
  Country: None (occurrence: None)
  Receive Date: 20110502
  Receipt Date: 20110420
  Transmission Date: 20111010
  Serious: Yes (Hospitalization, Other)
  Sender: FDA-Public Use
  Company Number: ES-ELI_LILLY_AND_COMPANY-ES201104005673

PATIENT
  Sex: Female
  Weight: 68 kg

DRUGS (10)
  1. PRO ULCO [Concomitant]
     Indication: PROPHYLAXIS
     Dosage: 30 MG, QD
     Route: 048
  2. ZESTRIL [Concomitant]
     Indication: HYPERTENSION
     Dosage: 20 MG, QD
     Route: 048
  3. LEVOTHROID [Concomitant]
     Dosage: 25 MG, ON MONDAYS, WEDNESDAY AND FRIDAY
     Route: 048
  4. DACORTIN [Concomitant]
     Indication: ANTIINFLAMMATORY THERAPY
     Dosage: 5 MG, ALTERNATIVE DAYS
     Route: 048
  5. CONDRO SAN [Concomitant]
     Indication: ARTHRITIS
     Dosage: 400 MG, BID
     Route: 048
  6. COLEMIN [Concomitant]
     Indication: BLOOD CHOLESTEROL
     Dosage: 20 MG, UNK
     Route: 048
  7. FORTEO [Suspect]
     Indication: OSTEOPOROSIS
     Dosage: 20 UG, QD
     Route: 058
     Dates: start: 20100328
  8. METHOTREXATE [Concomitant]
     Indication: ARTHRITIS
     Dosage: 2.5 MG, THURSDAY AND FRIDAY
     Route: 048
  9. LEVOTHROID [Concomitant]
     Indication: THYROID DISORDER
     Dosage: 50 MG, QD
     Route: 048
  10. TARDYFERON [Concomitant]
     Indication: ANAEMIA
     Dosage: 1 DF, QD
     Route: 048

REACTIONS (4)
  - FALL [None]
  - PATELLA FRACTURE [None]
  - PYREXIA [None]
  - PLEURAL EFFUSION [None]
